FAERS Safety Report 4571100-0 (Version None)
Quarter: 2005Q1

REPORT INFORMATION
  Report Type: 
  Country: None (occurrence: None)
  Receive Date: 20050202
  Receipt Date: 20050124
  Transmission Date: 20050727
  Serious: Yes (Death, Hospitalization, Other)
  Sender: FDA-Public Use
  Company Number: 2004-11-1023

PATIENT
  Age: 41 Year
  Sex: Male
  Weight: 65 kg

DRUGS (5)
  1. VIRAFERONPEG [Suspect]
     Indication: HEPATITIS C
     Dosage: 1.5 MICROG/KG/QWK SC
     Route: 058
     Dates: start: 20040201
  2. REBETOL [Suspect]
     Indication: HEPATITIS C
     Dosage: 800 MG QD ORAL
     Route: 048
     Dates: start: 20040201
  3. DOLIPRANE [Concomitant]
  4. LEXOMIL                (BROMAZEPAM) [Concomitant]
  5. STILNOX [Concomitant]

REACTIONS (31)
  - ABDOMINAL PAIN [None]
  - ANOREXIA [None]
  - ANURIA [None]
  - ARTHRALGIA [None]
  - ASCITES [None]
  - CARDIAC CIRRHOSIS [None]
  - CARDIAC DISORDER [None]
  - CARDIAC FAILURE [None]
  - COAGULOPATHY [None]
  - CYTOLYTIC HEPATITIS [None]
  - DEPRESSED LEVEL OF CONSCIOUSNESS [None]
  - DRUG INEFFECTIVE [None]
  - GENERALISED OEDEMA [None]
  - HEPATIC ATROPHY [None]
  - HEPATIC STEATOSIS [None]
  - HYPERKALAEMIA [None]
  - HYPOGLYCAEMIA [None]
  - HYPOTHERMIA [None]
  - HYPOXIA [None]
  - LIVER DISORDER [None]
  - MULTI-ORGAN FAILURE [None]
  - MUSCLE DISORDER [None]
  - MYOCARDITIS [None]
  - PLEURAL EFFUSION [None]
  - RENAL FAILURE ACUTE [None]
  - RESPIRATORY FAILURE [None]
  - RESPIRATORY MONILIASIS [None]
  - SEPTIC SHOCK [None]
  - SOMNOLENCE [None]
  - SUBILEUS [None]
  - THROMBOCYTOPENIA [None]
